FAERS Safety Report 10413984 (Version 1)
Quarter: 2014Q3

REPORT INFORMATION
  Report Type: Spontaneous
  Country: TW (occurrence: TW)
  Receive Date: 20140827
  Receipt Date: 20140827
  Transmission Date: 20150326
  Serious: Yes (Death)
  Sender: FDA-Public Use
  Company Number: TW-MERCK-1408TWN015116

PATIENT

DRUGS (1)
  1. CASPOFUNGIN ACETATE [Suspect]
     Active Substance: CASPOFUNGIN ACETATE
     Indication: SYSTEMIC CANDIDA
     Dosage: LOADING DOSE-70 MG,MAINTENANCE DOSE 50 MG QD FOR 1-4 WEEKS
     Route: 042

REACTIONS (2)
  - Drug ineffective [Fatal]
  - Death [Fatal]
